FAERS Safety Report 25949527 (Version 2)
Quarter: 2025Q4

REPORT INFORMATION
  Report Type: Report from Study
  Country: US (occurrence: US)
  Receive Date: 20251022
  Receipt Date: 20251024
  Transmission Date: 20260118
  Serious: Yes (Other)
  Sender: TAIHO ONCOLOGY INC
  Company Number: US-TAIHOP-2025-008433

PATIENT
  Age: 86 Year
  Sex: Male

DRUGS (3)
  1. INQOVI [Suspect]
     Active Substance: CEDAZURIDINE\DECITABINE
     Indication: Chronic myelomonocytic leukaemia
     Dosage: 135 MG (35MG DECITABINE AND 100MG CEDAZURIDINE) ON DAY 1-4; CYCLE UNKNOWN; RESTARTED 06/SEP/2025
     Route: 048
     Dates: start: 20211112
  2. INQOVI [Suspect]
     Active Substance: CEDAZURIDINE\DECITABINE
     Indication: Acute myelomonocytic leukaemia
  3. TRAMADOL HCL [Concomitant]
     Active Substance: TRAMADOL HYDROCHLORIDE
     Indication: Product used for unknown indication

REACTIONS (5)
  - Knee operation [Recovered/Resolved]
  - Red blood cell count decreased [Unknown]
  - White blood cell count decreased [Unknown]
  - Inappropriate schedule of product administration [Unknown]
  - Product use in unapproved indication [Unknown]

NARRATIVE: CASE EVENT DATE: 20250710
